FAERS Safety Report 8053914-8 (Version None)
Quarter: 2012Q1

REPORT INFORMATION
  Report Type: 
  Country: None (occurrence: None)
  Receive Date: 20120118
  Receipt Date: 20120112
  Transmission Date: 20120608
  Serious: Yes (Death)
  Sender: FDA-Public Use
  Company Number: JP-ELI_LILLY_AND_COMPANY-JP201108004707

PATIENT
  Sex: Male

DRUGS (4)
  1. METHYCOBAL [Concomitant]
     Dosage: 500 UG, OTHER
     Route: 030
     Dates: start: 20110208
  2. EMEND [Concomitant]
     Indication: PROPHYLAXIS OF NAUSEA AND VOMITING
     Dosage: 1 CUPSULE PER A DAY
     Route: 048
     Dates: start: 20110225, end: 20110227
  3. ALIMTA [Suspect]
     Indication: LUNG ADENOCARCINOMA RECURRENT
     Dosage: 500 MG/M2, EVERY 21 DAYS
     Route: 042
     Dates: start: 20110225, end: 20110225
  4. PANVITAN [Concomitant]
     Dosage: 1 G, QD
     Route: 048
     Dates: start: 20110208, end: 20110319

REACTIONS (2)
  - INTERSTITIAL LUNG DISEASE [None]
  - DRUG ERUPTION [None]
